FAERS Safety Report 7321091-4 (Version None)
Quarter: 2011Q1

REPORT INFORMATION
  Report Type: 
  Country: None (occurrence: None)
  Receive Date: 20110223
  Receipt Date: 20110223
  Transmission Date: 20110831
  Serious: Yes (Hospitalization, Other)
  Sender: FDA-Public Use
  Company Number: None

PATIENT
  Sex: Female

DRUGS (2)
  1. HUMALOG [Suspect]
     Indication: DIABETES MELLITUS
     Dosage: USE AS DIRECTED PER SLIDING
     Dates: start: 20110119, end: 20110124
  2. LANTUS [Concomitant]

REACTIONS (2)
  - PRODUCT QUALITY ISSUE [None]
  - ILL-DEFINED DISORDER [None]
